FAERS Safety Report 7221327-4 (Version None)
Quarter: 2011Q1

REPORT INFORMATION
  Report Type: 
  Country: None (occurrence: None)
  Receive Date: 20110112
  Receipt Date: 20110106
  Transmission Date: 20110831
  Serious: Yes (Other)
  Sender: FDA-Public Use
  Company Number: CHPA2011US00622

PATIENT
  Age: 83 Year
  Sex: Female
  Weight: 62.585 kg

DRUGS (4)
  1. SYNTHROID [Concomitant]
     Indication: HYPOTHYROIDISM
     Dosage: UNK, UNK
  2. MAALOX ADV MAXIMUM STRENGTH ANTACID/ANTIGAS [Suspect]
     Indication: DYSPEPSIA
     Dosage: 3 TSP, QHS PRN
     Route: 048
  3. COUMADIN [Concomitant]
     Indication: CEREBROVASCULAR ACCIDENT
     Dosage: UNK, UNK
     Dates: start: 19980101
  4. PREVACID [Concomitant]
     Indication: DYSPEPSIA
     Dosage: UNK, UNK
     Dates: start: 19980101

REACTIONS (5)
  - HIATUS HERNIA [None]
  - OESOPHAGEAL PAIN [None]
  - CEREBROVASCULAR ACCIDENT [None]
  - LYMPHOMA [None]
  - BLOOD SODIUM DECREASED [None]
